FAERS Safety Report 4745293-6 (Version None)
Quarter: 2005Q3

REPORT INFORMATION
  Report Type: 
  Country: None (occurrence: None)
  Receive Date: 20050812
  Receipt Date: 20050805
  Transmission Date: 20060218
  Serious: Yes (Death)
  Sender: FDA-Public Use
  Company Number: B0389927A

PATIENT
  Sex: 0

DRUGS (7)
  1. VINORELBINE TARTRATE [Suspect]
     Indication: NON-SMALL CELL LUNG CANCER
     Dosage: 300 SEE TEXT / CYCLIC / INTRAVENOUS INFUSI
     Route: 042
  2. CISPLATIN             (FORUMUATION UNKNOWN) (CISPLATIN) [Suspect]
     Indication: NON-SMALL CELL LUNG CANCER
     Dosage: CYCLIC
  3. GRANULOCYTE COL.STIM.FACT [Concomitant]
  4. ONDANSETRON HYDROCHLORIDE [Concomitant]
  5. DEXAMETHASONE [Concomitant]
  6. HYDRATION THERAPY [Concomitant]
  7. DIURETIC [Concomitant]

REACTIONS (2)
  - GASTROINTESTINAL HAEMORRHAGE [None]
  - THROMBOCYTOPENIA [None]
